FAERS Safety Report 5287543-6 (Version None)
Quarter: 2007Q1

REPORT INFORMATION
  Report Type: 
  Country: None (occurrence: None)
  Receive Date: 20070108
  Receipt Date: 20060301
  Transmission Date: 20070707
  Serious: Yes (Life-Threatening, Hospitalization, Other)
  Sender: FDA-Public Use
  Company Number: 006743

PATIENT
  Age: 36 Year
  Sex: Female
  Weight: 146.9 kg

DRUGS (5)
  1. CRYSELLE [Suspect]
     Indication: MENSTRUATION IRREGULAR
     Dosage: 1 TABLET, QD, ORAL
     Route: 048
     Dates: start: 20051110, end: 20060123
  2. CRYSELLE [Suspect]
     Indication: ORAL CONTRACEPTION
     Dosage: 1 TABLET, QD, ORAL
     Route: 048
     Dates: start: 20051110, end: 20060123
  3. METFORMIN HCL [Concomitant]
  4. AVANDIA [Concomitant]
  5. AMARYL [Concomitant]

REACTIONS (5)
  - ABDOMINAL PAIN UPPER [None]
  - DYSPNOEA [None]
  - HEADACHE [None]
  - PULMONARY EMBOLISM [None]
  - WEIGHT INCREASED [None]
